FAERS Safety Report 4418508-1 (Version None)
Quarter: 2004Q3

REPORT INFORMATION
  Report Type: 
  Country: None (occurrence: None)
  Receive Date: 20040809
  Receipt Date: 20040517
  Transmission Date: 20050211
  Serious: No
  Sender: FDA-Public Use
  Company Number: US-GLAXOSMITHKLINE-A0511090A

PATIENT
  Age: 73 Year
  Sex: Female

DRUGS (7)
  1. PAXIL CR [Suspect]
     Dosage: 12.5MG ALTERNATE DAYS
     Route: 048
     Dates: end: 20040511
  2. PRAVACHOL [Concomitant]
  3. ZETIA [Concomitant]
  4. GLUCOTROL [Concomitant]
  5. AVANDAMET [Concomitant]
  6. CALCIUM [Concomitant]
  7. VITAMIN E [Concomitant]

REACTIONS (1)
  - TINNITUS [None]
